FAERS Safety Report 15414739 (Version 1)
Quarter: 2018Q3

REPORT INFORMATION
  Report Type: Spontaneous
  Country: FR (occurrence: FR)
  Receive Date: 20180921
  Receipt Date: 20180921
  Transmission Date: 20181010
  Serious: Yes (Other)
  Sender: FDA-Public Use
  Company Number: FR-ASTRAZENECA-2018SF19612

PATIENT
  Sex: Female

DRUGS (1)
  1. SYMBICORT [Suspect]
     Active Substance: BUDESONIDE\FORMOTEROL FUMARATE DIHYDRATE
     Indication: ASPIRIN-EXACERBATED RESPIRATORY DISEASE
     Dosage: 400 MICROGRAMS/ 12 MICROGRAMS AT 2 INHALATIONS DAILY
     Route: 055

REACTIONS (4)
  - Product use in unapproved indication [Unknown]
  - Malaise [Unknown]
  - Off label use [Unknown]
  - Device malfunction [Unknown]
